FAERS Safety Report 12906901 (Version 2)
Quarter: 2016Q4

REPORT INFORMATION
  Report Type: Spontaneous
  Country: IT (occurrence: IT)
  Receive Date: 20161103
  Receipt Date: 20161205
  Transmission Date: 20170207
  Serious: Yes (Other)
  Sender: FDA-Public Use
  Company Number: IT-PFIZER INC-3177682

PATIENT
  Age: 69 Year
  Sex: Male
  Weight: 62 kg

DRUGS (3)
  1. FENTANYL CITRATE. [Suspect]
     Active Substance: FENTANYL CITRATE
     Indication: ANAESTHESIA
     Dosage: 1 UNK, TOTAL
     Route: 042
     Dates: start: 20160210, end: 20160210
  2. CEFAZOLIN [Suspect]
     Active Substance: CEFAZOLIN
     Indication: PROPHYLAXIS
     Dosage: 1 UNK, TOTAL
     Route: 042
     Dates: start: 20160210, end: 20160210
  3. PROPOFOL B. BRAUN [Suspect]
     Active Substance: PROPOFOL
     Indication: ANAESTHESIA
     Dosage: TOTAL
     Route: 042
     Dates: start: 20160210, end: 20160210

REACTIONS (2)
  - Nausea [Recovered/Resolved]
  - Vomiting [Recovered/Resolved]

NARRATIVE: CASE EVENT DATE: 20160210
